FAERS Safety Report 9235146 (Version 4)
Quarter: 2013Q2

REPORT INFORMATION
  Report Type: Spontaneous
  Country: US (occurrence: US)
  Receive Date: 20130416
  Receipt Date: 20130603
  Transmission Date: 20140414
  Serious: No
  Sender: FDA-Public Use
  Company Number: US-009507513-1304USA007157

PATIENT
  Sex: Male

DRUGS (3)
  1. PEGINTRON [Suspect]
     Indication: HEPATITIS C
     Dosage: 150 MICROGRAM, QW
     Route: 058
     Dates: start: 20130403
  2. RIBASPHERE [Suspect]
     Indication: HEPATITIS C
     Dosage: UNK
     Route: 048
     Dates: start: 20130403
  3. ZANTAC [Concomitant]

REACTIONS (6)
  - Ocular hyperaemia [Unknown]
  - Abdominal pain [Unknown]
  - Injection site reaction [Unknown]
  - Influenza like illness [Unknown]
  - Rash [Unknown]
  - Fatigue [Unknown]
